FAERS Safety Report 5016962-8 (Version None)
Quarter: 2006Q2

REPORT INFORMATION
  Report Type: 
  Country: None (occurrence: None)
  Receive Date: 20060526
  Receipt Date: 20060510
  Transmission Date: 20061013
  Serious: Yes (Hospitalization)
  Sender: FDA-Public Use
  Company Number: US200605002093

PATIENT
  Age: 2 Year
  Sex: Female
  Weight: 9.5 kg

DRUGS (3)
  1. HUMATROPE [Suspect]
     Indication: HYPOPITUITARISM
     Dosage: 0.4 MG, DAILY (1/D),
     Dates: start: 20040301
  2. CORTEF [Concomitant]
  3. SYNTHROID [Concomitant]

REACTIONS (1)
  - NEPHROTIC SYNDROME [None]
